FAERS Safety Report 6158793-1 (Version None)
Quarter: 2009Q2

REPORT INFORMATION
  Report Type: 
  Country: None (occurrence: None)
  Receive Date: 20090415
  Receipt Date: 20090331
  Transmission Date: 20091009
  Serious: Yes (Hospitalization)
  Sender: FDA-Public Use
  Company Number: 2009S1004256

PATIENT
  Age: 53 Year
  Sex: 0
  Weight: 81.6475 kg

DRUGS (4)
  1. FENTANYL TRANSDERMAL SYSTEM [Suspect]
     Indication: BACK PAIN
     Dosage: 75 UG; EVERY HOUR; TRANSDERMAL
     Route: 062
     Dates: start: 20050101
  2. CYMBALTA [Concomitant]
  3. NEURONTIN [Concomitant]
  4. LORAZEPAM [Concomitant]

REACTIONS (8)
  - BACK PAIN [None]
  - CONDITION AGGRAVATED [None]
  - DEVICE FAILURE [None]
  - DISEASE RECURRENCE [None]
  - DRUG INEFFECTIVE [None]
  - FALL [None]
  - LIMB INJURY [None]
  - SKIN LACERATION [None]
